FAERS Safety Report 9150058 (Version 2)
Quarter: 2013Q2

REPORT INFORMATION
  Report Type: Spontaneous
  Country: CH (occurrence: CH)
  Receive Date: 20130308
  Receipt Date: 20130409
  Transmission Date: 20140414
  Serious: Yes (Other)
  Sender: FDA-Public Use
  Company Number: PHHY2013CH021338

PATIENT
  Sex: Female
  Weight: 63 kg

DRUGS (3)
  1. GILENYA [Suspect]
     Route: 048
  2. EUTHYROX [Concomitant]
     Dosage: 75 MG, UNK
  3. MOBICOX [Concomitant]

REACTIONS (1)
  - Chondrocalcinosis [Not Recovered/Not Resolved]
